FAERS Safety Report 15811111 (Version 2)
Quarter: 2019Q1

REPORT INFORMATION
  Report Type: Spontaneous
  Country: RU (occurrence: RU)
  Receive Date: 20190111
  Receipt Date: 20190131
  Transmission Date: 20190417
  Serious: Yes (Hospitalization)
  Sender: FDA-Public Use
  Company Number: RU-TEVA-2019-RU-997296

PATIENT
  Age: 11 Year
  Sex: Female
  Weight: 41 kg

DRUGS (2)
  1. VINCRISTINE-TEVA [Suspect]
     Active Substance: VINCRISTINE
     Indication: ACUTE LYMPHOCYTIC LEUKAEMIA
     Dosage: 2 MILLIGRAM DAILY;
     Route: 042
     Dates: start: 20180927, end: 20181004
  2. DEXAMETHASONE. [Concomitant]
     Active Substance: DEXAMETHASONE
     Indication: ACUTE LYMPHOCYTIC LEUKAEMIA
     Route: 048
     Dates: start: 20180924, end: 20181010

REACTIONS (4)
  - Neuropathy peripheral [Recovering/Resolving]
  - Gait inability [Recovering/Resolving]
  - Peripheral sensory neuropathy [Recovering/Resolving]
  - Dysstasia [Recovering/Resolving]

NARRATIVE: CASE EVENT DATE: 20181015
